FAERS Safety Report 11935357 (Version 2)
Quarter: 2016Q2

REPORT INFORMATION
  Report Type: Spontaneous
  Country: US (occurrence: US)
  Receive Date: 20160121
  Receipt Date: 20160411
  Transmission Date: 20160815
  Serious: No
  Sender: FDA-Public Use
  Company Number: US-PFIZER INC-2016021658

PATIENT
  Sex: Male

DRUGS (1)
  1. CHANTIX [Suspect]
     Active Substance: VARENICLINE TARTRATE
     Dosage: UNK [0.5 MG (11) 1 MG (14/28)]
     Dates: start: 201511

REACTIONS (5)
  - Abnormal dreams [Unknown]
  - Activities of daily living impaired [Unknown]
  - Nightmare [Unknown]
  - Agitation [Unknown]
  - Aggression [Unknown]
